FAERS Safety Report 11795099 (Version 2)
Quarter: 2016Q1

REPORT INFORMATION
  Report Type: Spontaneous
  Country: JP (occurrence: JP)
  Receive Date: 20151202
  Receipt Date: 20160303
  Transmission Date: 20160525
  Serious: Yes (Death)
  Sender: FDA-Public Use
  Company Number: JP-JNJFOC-20151200869

PATIENT
  Age: 53 Year
  Sex: Female
  Weight: 50 kg

DRUGS (16)
  1. XARELTO [Suspect]
     Active Substance: RIVAROXABAN
     Indication: DEEP VEIN THROMBOSIS
     Route: 048
     Dates: start: 201510, end: 201510
  2. LEVETIRACETAM. [Concomitant]
     Active Substance: LEVETIRACETAM
     Indication: EPILEPSY
     Route: 050
     Dates: start: 20150623, end: 20151107
  3. XARELTO [Suspect]
     Active Substance: RIVAROXABAN
     Indication: EMBOLISM VENOUS
     Route: 048
     Dates: start: 20151027, end: 20151107
  4. XARELTO [Suspect]
     Active Substance: RIVAROXABAN
     Indication: EMBOLISM VENOUS
     Route: 048
  5. XARELTO [Suspect]
     Active Substance: RIVAROXABAN
     Indication: DEEP VEIN THROMBOSIS
     Route: 048
     Dates: start: 20151027, end: 20151107
  6. XARELTO [Suspect]
     Active Substance: RIVAROXABAN
     Indication: DEEP VEIN THROMBOSIS
     Route: 048
  7. ALBUMIN TANNATE [Concomitant]
     Active Substance: ALBUMIN BOVINE\TANNIC ACID
     Route: 050
     Dates: start: 20151012, end: 20151021
  8. XARELTO [Suspect]
     Active Substance: RIVAROXABAN
     Indication: EMBOLISM VENOUS
     Route: 048
     Dates: start: 201510, end: 201510
  9. CERVOXAN [Concomitant]
     Indication: GASTRIC ULCER HAEMORRHAGE
     Route: 050
     Dates: start: 20150527, end: 20151107
  10. BISOPROLOL [Concomitant]
     Active Substance: BISOPROLOL
     Route: 062
     Dates: start: 20151006, end: 20151020
  11. XARELTO [Suspect]
     Active Substance: RIVAROXABAN
     Indication: VENOUS THROMBOSIS LIMB
     Route: 048
     Dates: start: 20151027, end: 20151107
  12. ADSORBIN [Concomitant]
     Active Substance: ALUMINUM SILICATE
     Route: 050
     Dates: start: 20151012, end: 20151021
  13. XARELTO [Suspect]
     Active Substance: RIVAROXABAN
     Indication: VENOUS THROMBOSIS LIMB
     Route: 048
  14. TEGRETOL [Concomitant]
     Active Substance: CARBAMAZEPINE
     Indication: EPILEPSY
     Route: 050
     Dates: start: 20150919, end: 20151107
  15. POTASSIUM MAGNESIUM ASPARTATE [Concomitant]
     Indication: HYPOKALAEMIA
     Route: 050
     Dates: start: 20151027, end: 20151107
  16. XARELTO [Suspect]
     Active Substance: RIVAROXABAN
     Indication: VENOUS THROMBOSIS LIMB
     Route: 048
     Dates: start: 201510, end: 201510

REACTIONS (1)
  - Multiple organ dysfunction syndrome [Fatal]

NARRATIVE: CASE EVENT DATE: 20151015
